FAERS Safety Report 7075308-4 (Version None)
Quarter: 2010Q4

REPORT INFORMATION
  Report Type: 
  Country: None (occurrence: None)
  Receive Date: 20101030
  Receipt Date: 20100709
  Transmission Date: 20110411
  Serious: No
  Sender: FDA-Public Use
  Company Number: US-WYE-H16392210

PATIENT
  Age: 32 Year
  Sex: Male
  Weight: 81.72 kg

DRUGS (2)
  1. ADVIL PM [Suspect]
     Indication: MUSCULOSKELETAL PAIN
     Dosage: UNKNOWN
     Route: 048
  2. ADVIL PM [Suspect]
     Indication: INSOMNIA

REACTIONS (2)
  - BALANCE DISORDER [None]
  - DIZZINESS [None]
